FAERS Safety Report 9201335 (Version 1)
Quarter: 2013Q2

REPORT INFORMATION
  Report Type: Spontaneous
  Country: HU (occurrence: HU)
  Receive Date: 20130401
  Receipt Date: 20130401
  Transmission Date: 20140414
  Serious: Yes (Other)
  Sender: FDA-Public Use
  Company Number: HU-JNJFOC-20130301366

PATIENT
  Age: 45 Year
  Sex: Female

DRUGS (3)
  1. REMICADE [Suspect]
     Indication: PSORIASIS
     Dosage: 1ST DOSE
     Route: 042
     Dates: start: 20121220
  2. REMICADE [Suspect]
     Indication: PSORIASIS
     Dosage: 2ND DOSE
     Route: 042
     Dates: start: 20130114
  3. REMICADE [Suspect]
     Indication: PSORIASIS
     Dosage: 3RD DOSE
     Route: 042
     Dates: start: 20130214, end: 20130214

REACTIONS (3)
  - Hypertension [Recovered/Resolved]
  - Heart rate increased [Recovered/Resolved]
  - Malaise [Recovered/Resolved]
